FAERS Safety Report 10727994 (Version 1)
Quarter: 2015Q1

REPORT INFORMATION
  Report Type: Spontaneous
  Country: CN (occurrence: CN)
  Receive Date: 20150121
  Receipt Date: 20150121
  Transmission Date: 20150721
  Serious: Yes (Death, Life-Threatening, Hospitalization, Other)
  Sender: FDA-Public Use
  Company Number: CN-ROXANE LABORATORIES, INC.-2015-RO-00082RO

PATIENT
  Age: 42 Year
  Sex: Male

DRUGS (3)
  1. ALLOPURINOL. [Suspect]
     Active Substance: ALLOPURINOL
     Indication: GOUT
     Route: 065
  2. METHOTREXATE [Suspect]
     Active Substance: METHOTREXATE
     Indication: GOUT
     Route: 065
  3. COLCHICINE. [Suspect]
     Active Substance: COLCHICINE
     Indication: GOUT
     Route: 065

REACTIONS (18)
  - Oral herpes [Unknown]
  - Epistaxis [None]
  - Agitation [None]
  - Septic shock [Unknown]
  - Hypotension [None]
  - Neutrophil count [None]
  - Acinetobacter bacteraemia [Fatal]
  - Blood creatinine increased [None]
  - Self-medication [None]
  - Multi-organ failure [Unknown]
  - Febrile neutropenia [Unknown]
  - Arthralgia [None]
  - Blood uric acid increased [None]
  - Purpura [None]
  - Oxygen saturation decreased [None]
  - Hyperbilirubinaemia [None]
  - Bacterial test positive [None]
  - Klebsiella infection [Fatal]
